FAERS Safety Report 18427295 (Version 3)
Quarter: 2021Q4

REPORT INFORMATION
  Report Type: Spontaneous
  Country: US (occurrence: US)
  Receive Date: 20201026
  Receipt Date: 20211007
  Transmission Date: 20220303
  Serious: No
  Sender: FDA-Public Use
  Company Number: US-PFIZER INC-2020410818

PATIENT
  Sex: Female

DRUGS (2)
  1. PREMARIN [Suspect]
     Active Substance: ESTROGENS, CONJUGATED
     Indication: Urinary tract infection
     Dosage: SMALL DAP ONCE DAILY THEN TAPERED TO 3 TIMES A WEEK
     Dates: start: 20201006
  2. PREMARIN [Suspect]
     Active Substance: ESTROGENS, CONJUGATED
     Dosage: SMALL DAP TAPERED TO 3 TIMES A WEEK

REACTIONS (2)
  - Off label use [Unknown]
  - Abdominal pain lower [Unknown]

NARRATIVE: CASE EVENT DATE: 20201001
